FAERS Safety Report 7467233-1 (Version None)
Quarter: 2011Q2

REPORT INFORMATION
  Report Type: 
  Country: None (occurrence: None)
  Receive Date: 20110509
  Receipt Date: 20110428
  Transmission Date: 20111010
  Serious: Yes (Other)
  Sender: FDA-Public Use
  Company Number: PHHY2011GR37159

PATIENT
  Age: 68 Year
  Sex: Female
  Weight: 69 kg

DRUGS (10)
  1. ETANERCEPT [Concomitant]
  2. USTEKINUMAB [Concomitant]
     Dosage: 45 MG, UNK
  3. CALCIPOTRIOL [Concomitant]
     Dosage: UNK
     Route: 061
  4. BETAMETHASONE [Concomitant]
     Dosage: UNK
     Route: 061
  5. METHOTREXATE [Concomitant]
  6. ADALIMUMAB [Concomitant]
  7. CYCLOSPORINE [Suspect]
     Indication: PSORIASIS
     Dosage: 25 MG, UNK
  8. ACITRETIN [Concomitant]
  9. INFLIXIMAB [Concomitant]
  10. EFALIZUMAB [Concomitant]

REACTIONS (2)
  - PSORIASIS [None]
  - DRUG INEFFECTIVE [None]
